FAERS Safety Report 15327773 (Version 1)
Quarter: 2018Q3

REPORT INFORMATION
  Report Type: Spontaneous
  Country: US (occurrence: US)
  Receive Date: 20180828
  Receipt Date: 20180828
  Transmission Date: 20181010
  Serious: No
  Sender: FDA-Public Use
  Company Number: US-ROCHE-2119654

PATIENT
  Sex: Female

DRUGS (2)
  1. ALECENSA [Suspect]
     Active Substance: ALECTINIB HYDROCHLORIDE
     Indication: LUNG NEOPLASM MALIGNANT
     Dosage: ONGOING: UNKNOWN
     Route: 065
  2. ALECENSA [Suspect]
     Active Substance: ALECTINIB HYDROCHLORIDE
     Dosage: ONGOING: UNKNOWN
     Route: 065
     Dates: start: 20180501

REACTIONS (2)
  - No adverse event [Unknown]
  - Inappropriate schedule of drug administration [Unknown]
